FAERS Safety Report 11843725 (Version 1)
Quarter: 2015Q4

REPORT INFORMATION
  Report Type: Spontaneous
  Country: US (occurrence: US)
  Receive Date: 20151217
  Receipt Date: 20151217
  Transmission Date: 20160305
  Serious: No
  Sender: FDA-Public Use
  Company Number: US-HOSPIRA-2859616

PATIENT
  Sex: Female

DRUGS (9)
  1. BIAXIN [Suspect]
     Active Substance: CLARITHROMYCIN
     Indication: SINUSITIS
  2. ULTRAM [Concomitant]
     Active Substance: TRAMADOL HYDROCHLORIDE
     Indication: PAIN
  3. TALWIN [Concomitant]
     Active Substance: PENTAZOCINE LACTATE
     Indication: PAIN
  4. ULTRAM [Concomitant]
     Active Substance: TRAMADOL HYDROCHLORIDE
  5. MORPHINE SULFATE. [Concomitant]
     Active Substance: MORPHINE SULFATE
     Indication: HYSTERECTOMY
     Dosage: 1 WEEK
     Dates: start: 1972
  6. ZESTRIL [Concomitant]
     Active Substance: LISINOPRIL
     Indication: BLOOD PRESSURE INCREASED
  7. CLINDAMYCIN [Suspect]
     Active Substance: CLINDAMYCIN\CLINDAMYCIN PHOSPHATE
     Indication: INFECTION
  8. ERYTHROMYCIN. [Suspect]
     Active Substance: ERYTHROMYCIN
     Indication: SINUSITIS
  9. AMITRIPTYLINE [Concomitant]
     Active Substance: AMITRIPTYLINE
     Indication: DEPRESSION

REACTIONS (1)
  - Rash [Not Recovered/Not Resolved]
